FAERS Safety Report 18737157 (Version 3)
Quarter: 2021Q1

REPORT INFORMATION
  Report Type: Spontaneous
  Country: US (occurrence: US)
  Receive Date: 20210113
  Receipt Date: 20210223
  Transmission Date: 20210419
  Serious: Yes (Hospitalization, Other)
  Sender: FDA-Public Use
  Company Number: US-PFIZER INC-2021019490

PATIENT
  Age: 81 Year
  Sex: Male
  Weight: 86.18 kg

DRUGS (4)
  1. BRAFTOVI [Suspect]
     Active Substance: ENCORAFENIB
     Dosage: 150 MG, 1X/DAY (75MG TWO CAPSULES A DAY BY MOUTH)
     Dates: end: 2020
  2. MEKTOVI [Suspect]
     Active Substance: BINIMETINIB
     Dosage: UNK
  3. MEKTOVI [Suspect]
     Active Substance: BINIMETINIB
     Indication: MALIGNANT MELANOMA
     Dosage: 15 MG, 2X/DAY (15MG ONE IN THE MORNING AND ONE AT NIGHT BY MOUTH)
     Route: 048
     Dates: start: 202007, end: 2020
  4. BRAFTOVI [Suspect]
     Active Substance: ENCORAFENIB
     Indication: MALIGNANT MELANOMA
     Dosage: 150 MG, 1X/DAY (75MG TWO CAPSULES A DAY BY MOUTH)
     Route: 048
     Dates: start: 202007

REACTIONS (6)
  - Off label use [Unknown]
  - Confusional state [Recovered/Resolved]
  - Speech disorder [Recovered/Resolved]
  - Renal failure [Recovering/Resolving]
  - Intentional product misuse [Unknown]
  - Delirium [Recovered/Resolved]
